FAERS Safety Report 24273049 (Version 2)
Quarter: 2024Q3

REPORT INFORMATION
  Report Type: Spontaneous
  Country: ES (occurrence: ES)
  Receive Date: 20240902
  Receipt Date: 20240906
  Transmission Date: 20241017
  Serious: Yes (Death, Other)
  Sender: AUROBINDO
  Company Number: ES-AUROBINDO-AUR-APL-2024-042308

PATIENT
  Age: 86 Year
  Sex: Male

DRUGS (5)
  1. PIPERACILLIN AND TAZOBACTAM [Suspect]
     Active Substance: PIPERACILLIN SODIUM\TAZOBACTAM SODIUM
     Indication: Eczema impetiginous
     Dosage: 4/0.5 GRAM
     Route: 065
  2. LEUCOVORIN [Suspect]
     Active Substance: LEUCOVORIN\LEUCOVORIN CALCIUM
     Indication: Toxicity to various agents
     Dosage: 15 MILLIGRAM, FOUR TIMES/DAY
     Route: 042
  3. NEUPOGEN [Suspect]
     Active Substance: FILGRASTIM
     Indication: Toxicity to various agents
     Dosage: 480 MICROGRAM, ONCE A DAY
     Route: 065
  4. SODIUM BICARBONATE [Suspect]
     Active Substance: SODIUM BICARBONATE
     Indication: Urine alkalinisation therapy
     Dosage: UNK
     Route: 065
  5. SODIUM BICARBONATE [Suspect]
     Active Substance: SODIUM BICARBONATE
     Indication: Toxicity to various agents

REACTIONS (1)
  - Drug ineffective [Fatal]
